FAERS Safety Report 5419436-5 (Version None)
Quarter: 2007Q3

REPORT INFORMATION
  Report Type: 
  Country: None (occurrence: None)
  Receive Date: 20070820
  Receipt Date: 20070816
  Transmission Date: 20080115
  Serious: Yes (Hospitalization, Other)
  Sender: FDA-Public Use
  Company Number: B0481935A

PATIENT
  Age: 70 Year
  Sex: Male

DRUGS (3)
  1. FLOLAN [Suspect]
     Indication: PULMONARY HYPERTENSION
     Route: 042
     Dates: start: 20041215
  2. DOBUTAMINE HCL [Concomitant]
     Route: 042
  3. BOSENTAN [Concomitant]
     Route: 048

REACTIONS (2)
  - PLATELET COUNT DECREASED [None]
  - VIRAL INFECTION [None]
